FAERS Safety Report 16032262 (Version 1)
Quarter: 2019Q1

REPORT INFORMATION
  Report Type: Spontaneous
  Country: CH (occurrence: CH)
  Receive Date: 20190304
  Receipt Date: 20190304
  Transmission Date: 20190418
  Serious: Yes (Other)
  Sender: FDA-Public Use
  Company Number: CH-BAXTER-2019BAX004072

PATIENT
  Sex: Female

DRUGS (1)
  1. ENDOXAN 1 G. TROCKENSUBSTANZ ZUR INTRAVEN?SEN INFUSION [Suspect]
     Active Substance: CYCLOPHOSPHAMIDE
     Indication: OVARIAN CANCER
     Dosage: FIRST LINE OF CHEMOTHERAPY
     Route: 065

REACTIONS (5)
  - Drug ineffective [Unknown]
  - Metastases to thorax [Unknown]
  - Ovarian cancer metastatic [Unknown]
  - Metastases to muscle [Unknown]
  - Pleural effusion [Unknown]
